FAERS Safety Report 24137259 (Version 1)
Quarter: 2024Q3

REPORT INFORMATION
  Report Type: Spontaneous
  Country: DK (occurrence: DK)
  Receive Date: 20240725
  Receipt Date: 20240725
  Transmission Date: 20241017
  Serious: Yes (Death, Other)
  Sender: TEVA
  Company Number: None

PATIENT
  Age: 96 Year
  Sex: Male
  Weight: 72 kg

DRUGS (5)
  1. TOLTERODINE [Suspect]
     Active Substance: TOLTERODINE
     Indication: Pollakiuria
     Dosage: TOLTERODINE TARTRATE ^TEVA^
     Route: 048
     Dates: start: 20211011, end: 20240429
  2. MELATONIN [Concomitant]
     Active Substance: MELATONIN
     Indication: Insomnia
     Route: 065
     Dates: start: 2020
  3. POTASSIUM CHLORIDE [Concomitant]
     Active Substance: POTASSIUM CHLORIDE
     Indication: Mineral supplementation
     Route: 065
     Dates: start: 20230313
  4. AMLODIPINE BESYLATE [Concomitant]
     Active Substance: AMLODIPINE BESYLATE
     Indication: Hypertension
     Dates: start: 2019
  5. FUROSEMIDE [Concomitant]
     Active Substance: FUROSEMIDE
     Indication: Diuretic therapy
     Route: 065
     Dates: start: 2019

REACTIONS (4)
  - Urinary retention [Fatal]
  - Oedema [Unknown]
  - Postrenal failure [Fatal]
  - Dyspnoea [Unknown]

NARRATIVE: CASE EVENT DATE: 20240427
